FAERS Safety Report 14251484 (Version 1)
Quarter: 2017Q4

REPORT INFORMATION
  Report Type: Report from Study
  Country: DE (occurrence: DE)
  Receive Date: 20171205
  Receipt Date: 20171205
  Transmission Date: 20180321
  Serious: Yes (Hospitalization)
  Sender: FDA-Public Use
  Company Number: PHHY2017DE177005

PATIENT
  Sex: Female
  Weight: 77 kg

DRUGS (17)
  1. DOXYCYCLINE. [Concomitant]
     Active Substance: DOXYCYCLINE
     Indication: NASOPHARYNGITIS
     Dosage: 100 MG, QD
     Route: 048
     Dates: start: 20110104, end: 201101
  2. LEVOFLOXACIN. [Concomitant]
     Active Substance: LEVOFLOXACIN
     Indication: SINUSITIS
  3. GILENYA [Suspect]
     Active Substance: FINGOLIMOD HYDROCHLORIDE
     Indication: MULTIPLE SCLEROSIS
     Dosage: 0.5 MG, QD
     Route: 048
     Dates: start: 20110809, end: 20130528
  4. VELAFEE [Concomitant]
     Indication: PRODUCT USED FOR UNKNOWN INDICATION
     Dosage: UNK
     Route: 065
     Dates: start: 201006
  5. CIPRALEX [Concomitant]
     Active Substance: ESCITALOPRAM OXALATE
     Indication: DEPRESSION
     Dosage: 10 MG, QD
     Route: 048
     Dates: start: 20140612, end: 20140614
  6. LOSARTAN. [Concomitant]
     Active Substance: LOSARTAN
     Indication: HYPERTENSION
     Dosage: 1 X 1/2
     Route: 048
     Dates: start: 201010
  7. PANTOZOL [Concomitant]
     Active Substance: PANTOPRAZOLE SODIUM
     Indication: PRODUCT USED FOR UNKNOWN INDICATION
     Dosage: UNK UNK, QD
     Route: 065
     Dates: start: 20140530, end: 20140606
  8. GILENYA [Suspect]
     Active Substance: FINGOLIMOD HYDROCHLORIDE
     Dosage: 0.5 MG, QD
     Route: 048
     Dates: start: 20130912, end: 20170124
  9. VALETTE [Concomitant]
     Active Substance: DIENOGEST\ETHINYL ESTRADIOL
     Indication: CONTRACEPTION
     Dosage: UNK UNK, QD
     Route: 048
     Dates: end: 201005
  10. DOXYCYCLINE. [Concomitant]
     Active Substance: DOXYCYCLINE
     Indication: SINUSITIS
  11. CLEXANE [Concomitant]
     Active Substance: ENOXAPARIN SODIUM
     Indication: PRODUCT USED FOR UNKNOWN INDICATION
     Dosage: UNK UNK, QD
     Route: 058
     Dates: start: 20140530, end: 20140601
  12. ROXITHROMYCIN [Concomitant]
     Active Substance: ROXITHROMYCIN
     Indication: SINUSITIS
  13. URBASON [Concomitant]
     Active Substance: METHYLPREDNISOLONE
     Indication: PRODUCT USED FOR UNKNOWN INDICATION
     Dosage: 1000 MG, QD
     Route: 042
     Dates: start: 20140530, end: 20140601
  14. DICLOFENAC [Concomitant]
     Active Substance: DICLOFENAC
     Indication: BACK PAIN
     Dosage: 100 MG, PRN
     Route: 048
     Dates: start: 201007
  15. DICLOFENAC [Concomitant]
     Active Substance: DICLOFENAC
     Indication: OSTEOARTHRITIS
  16. LEVOFLOXACIN. [Concomitant]
     Active Substance: LEVOFLOXACIN
     Indication: NASOPHARYNGITIS
     Dosage: 500 MG, QD
     Route: 048
     Dates: start: 20120206, end: 20120210
  17. ROXITHROMYCIN [Concomitant]
     Active Substance: ROXITHROMYCIN
     Indication: NASOPHARYNGITIS
     Dosage: 150 MG, QD
     Route: 048
     Dates: start: 20111227, end: 20120101

REACTIONS (1)
  - Kinematic imbalances due to suboccipital strain [Recovered/Resolved]

NARRATIVE: CASE EVENT DATE: 20170116
